FAERS Safety Report 24206705 (Version 1)
Quarter: 2024Q3

REPORT INFORMATION
  Report Type: Spontaneous
  Country: FR (occurrence: FR)
  Receive Date: 20240813
  Receipt Date: 20240813
  Transmission Date: 20241016
  Serious: Yes (Other)
  Sender: JAZZ
  Company Number: FR-JAZZ-2023-FR-012977

PATIENT

DRUGS (3)
  1. VYXEOS [Suspect]
     Active Substance: CYTARABINE\DAUNORUBICIN
     Indication: Acute myeloid leukaemia
     Dosage: 29 MILLIGRAM/SQ. METER/DAY AT D-14 AND D-12
  2. FLUDARABINE [Suspect]
     Active Substance: FLUDARABINE PHOSPHATE
     Indication: Acute myeloid leukaemia
     Dosage: 30 MILLIGRAM/SQ. METER/DAY FROM D-5 TO D-2
  3. TREOSULFAN [Suspect]
     Active Substance: TREOSULFAN
     Indication: Acute myeloid leukaemia
     Dosage: 10 GRAM/SQ. METER/DAY FROM D-6 TO D-4

REACTIONS (4)
  - Febrile neutropenia [Unknown]
  - Enterocolitis [Unknown]
  - Stomatitis [Unknown]
  - Off label use [Unknown]
